FAERS Safety Report 9729482 (Version 2)
Quarter: 2015Q3

REPORT INFORMATION
  Report Type: Spontaneous
  Country: US (occurrence: US)
  Receive Date: 20131204
  Receipt Date: 20150804
  Transmission Date: 20151125
  Serious: No
  Sender: FDA-Public Use
  Company Number: US-GILEAD-2009-0021621

PATIENT
  Age: 64 Year
  Sex: Female
  Weight: 98.43 kg

DRUGS (13)
  1. ZANTAC [Concomitant]
     Active Substance: RANITIDINE HYDROCHLORIDE
  2. MICARDIS [Concomitant]
     Active Substance: TELMISARTAN
  3. ASA LOW DOSE [Concomitant]
  4. MOBIC [Concomitant]
     Active Substance: MELOXICAM
  5. HUMIRA KIT [Concomitant]
  6. LETAIRIS [Suspect]
     Active Substance: AMBRISENTAN
     Indication: PULMONARY ARTERIAL HYPERTENSION
     Route: 048
     Dates: start: 20090126, end: 20090416
  7. BUMEX [Concomitant]
     Active Substance: BUMETANIDE
  8. TOPROL XL [Concomitant]
     Active Substance: METOPROLOL SUCCINATE
  9. ZOCOR [Concomitant]
     Active Substance: SIMVASTATIN
  10. REVATIO [Concomitant]
     Active Substance: SILDENAFIL CITRATE
  11. PLENDIL [Concomitant]
     Active Substance: FELODIPINE
  12. IMURAN [Concomitant]
     Active Substance: AZATHIOPRINE
  13. SPIRONOLACT [Concomitant]

REACTIONS (3)
  - Rash [Not Recovered/Not Resolved]
  - Dyspnoea [Not Recovered/Not Resolved]
  - Oedema peripheral [Not Recovered/Not Resolved]

NARRATIVE: CASE EVENT DATE: 20090130
